FAERS Safety Report 5263566-8 (Version None)
Quarter: 2007Q1

REPORT INFORMATION
  Report Type: 
  Country: None (occurrence: None)
  Receive Date: 20061213
  Receipt Date: 20030813
  Transmission Date: 20070707
  Serious: Yes (Hospitalization)
  Sender: FDA-Public Use
  Company Number: 2003UW08595

PATIENT
  Age: 67 Year
  Sex: Male
  Weight: 99.7913 kg

DRUGS (5)
  1. IRESSA [Suspect]
     Indication: NON-SMALL CELL LUNG CANCER
     Dates: start: 20030701
  2. COUMADIN [Concomitant]
  3. ATENOLOL [Concomitant]
  4. PEPCID [Concomitant]
  5. HYCODAN [Concomitant]

REACTIONS (1)
  - DISEASE PROGRESSION [None]
